FAERS Safety Report 4632748-8 (Version None)
Quarter: 2005Q2

REPORT INFORMATION
  Report Type: 
  Country: None (occurrence: None)
  Receive Date: 20050408
  Receipt Date: 20050408
  Transmission Date: 20051028
  Serious: Yes (Death)
  Sender: FDA-Public Use
  Company Number: None

PATIENT
  Sex: Female
  Weight: 43.5453 kg

DRUGS (2)
  1. TAXOTERE [Suspect]
     Indication: BREAST CANCER METASTATIC
     Dates: start: 20041216, end: 20050111
  2. XELODA [Suspect]
     Dates: start: 20041216, end: 20050111

REACTIONS (1)
  - DISEASE PROGRESSION [None]
